FAERS Safety Report 15708092 (Version 2)
Quarter: 2018Q4

REPORT INFORMATION
  Report Type: Spontaneous
  Country: US (occurrence: US)
  Receive Date: 20181211
  Receipt Date: 20181221
  Transmission Date: 20190205
  Serious: No
  Sender: FDA-Public Use
  Company Number: US-HORIZON-DUE-0694-2018

PATIENT
  Age: 77 Year
  Sex: Female

DRUGS (12)
  1. FLECAINIDE [Concomitant]
     Active Substance: FLECAINIDE
  2. DILTIAZEM. [Concomitant]
     Active Substance: DILTIAZEM
  3. DUEXIS [Suspect]
     Active Substance: FAMOTIDINE\IBUPROFEN
     Indication: JOINT SWELLING
     Dosage: ONLY TOOK 1 TABLET
     Dates: start: 20181201, end: 20181201
  4. WARFARIN [Concomitant]
     Active Substance: WARFARIN
  5. POTASSIUM [Concomitant]
     Active Substance: POTASSIUM
  6. ACETAMINOPHEN. [Concomitant]
     Active Substance: ACETAMINOPHEN
  7. FUROSEMIDE. [Concomitant]
     Active Substance: FUROSEMIDE
  8. HUMIRA [Concomitant]
     Active Substance: ADALIMUMAB
  9. TRAMADOL. [Concomitant]
     Active Substance: TRAMADOL
  10. LYRICA [Concomitant]
     Active Substance: PREGABALIN
  11. FENOFIBRIC [Concomitant]
     Active Substance: FENOFIBRIC ACID
  12. LEVEMIR [Concomitant]
     Active Substance: INSULIN DETEMIR

REACTIONS (6)
  - Off label use [Recovered/Resolved]
  - Disturbance in attention [Recovered/Resolved]
  - Dizziness [Recovered/Resolved]
  - Pain in extremity [Recovered/Resolved]
  - Aphasia [Recovered/Resolved]
  - Confusional state [Recovered/Resolved]

NARRATIVE: CASE EVENT DATE: 20181201
